FAERS Safety Report 6789638-4 (Version None)
Quarter: 2010Q2

REPORT INFORMATION
  Report Type: 
  Country: None (occurrence: None)
  Receive Date: 20100624
  Receipt Date: 20100616
  Transmission Date: 20101027
  Serious: No
  Sender: FDA-Public Use
  Company Number: US-BIOGENIDEC-2010BI020774

PATIENT
  Sex: Male

DRUGS (5)
  1. TYSABRI [Suspect]
     Indication: MULTIPLE SCLEROSIS
     Route: 042
     Dates: start: 20050112
  2. TYSABRI [Suspect]
     Route: 042
     Dates: start: 20061018, end: 20080404
  3. TYSABRI [Suspect]
     Route: 042
     Dates: start: 20080627
  4. AVONEX [Concomitant]
     Indication: MULTIPLE SCLEROSIS
     Route: 030
     Dates: start: 20011022
  5. AVONEX [Concomitant]
     Route: 030
     Dates: start: 20070101

REACTIONS (2)
  - MULTIPLE SCLEROSIS RELAPSE [None]
  - OVERWEIGHT [None]
